FAERS Safety Report 13420246 (Version 1)
Quarter: 2017Q2

REPORT INFORMATION
  Report Type: Spontaneous
  Country: US (occurrence: US)
  Receive Date: 20170407
  Receipt Date: 20170407
  Transmission Date: 20170830
  Serious: Yes (Hospitalization, Other)
  Sender: FDA-Public Use
  Company Number: US-FRESENIUS KABI-FK201702711

PATIENT
  Age: 3 Year
  Sex: Female

DRUGS (1)
  1. ACYCLOVIR FOR INJECTION, USP [Suspect]
     Active Substance: ACYCLOVIR
     Indication: HEPATITIS ACUTE
     Route: 042
     Dates: start: 201703, end: 201703

REACTIONS (5)
  - Contusion [Unknown]
  - Alopecia [Unknown]
  - Malaise [Unknown]
  - Pneumonia [Unknown]
  - Product use in unapproved indication [Recovered/Resolved]

NARRATIVE: CASE EVENT DATE: 201703
